FAERS Safety Report 7000520-X (Version None)
Quarter: 2010Q3

REPORT INFORMATION
  Report Type: 
  Country: None (occurrence: None)
  Receive Date: 20100920
  Receipt Date: 20100701
  Transmission Date: 20110219
  Serious: No
  Sender: FDA-Public Use
  Company Number: US-ASTRAZENECA-2007UW07768

PATIENT
  Age: 40 Year
  Sex: Female
  Weight: 79.4 kg

DRUGS (7)
  1. SEROQUEL [Suspect]
     Indication: DEPRESSION
     Route: 048
     Dates: start: 20040101, end: 20040401
  2. SEROQUEL [Suspect]
     Dosage: 25-100MG
     Route: 048
     Dates: start: 20060126, end: 20060423
  3. RISPERDAL [Concomitant]
  4. ZYPREXA [Concomitant]
  5. FLUOXETINE [Concomitant]
     Dosage: 10-20 MG
     Route: 048
     Dates: start: 20051106
  6. GABAPENTIN [Concomitant]
     Dosage: 300 MG - 600 MG
     Route: 048
     Dates: start: 20070507
  7. AMBIEN [Concomitant]
     Route: 048
     Dates: start: 20070618

REACTIONS (4)
  - HYPERGLYCAEMIA [None]
  - NEOPLASM [None]
  - TYPE 2 DIABETES MELLITUS [None]
  - WEIGHT INCREASED [None]
